FAERS Safety Report 5931483-3 (Version None)
Quarter: 2008Q4

REPORT INFORMATION
  Report Type: 
  Country: None (occurrence: None)
  Receive Date: 20081027
  Receipt Date: 20081017
  Transmission Date: 20090506
  Serious: Yes (Other)
  Sender: FDA-Public Use
  Company Number: ES-AVENTIS-200819940GDDC

PATIENT
  Age: 11 Year
  Sex: Male

DRUGS (3)
  1. MINURIN                            /00361901/ [Suspect]
     Route: 048
     Dates: start: 20080601, end: 20080601
  2. MINURIN                            /00361901/ [Suspect]
     Route: 060
     Dates: start: 20080723, end: 20080729
  3. RUBIFEN [Concomitant]
     Route: 048
     Dates: start: 20070901

REACTIONS (1)
  - HALLUCINATION, AUDITORY [None]
